FAERS Safety Report 16262214 (Version 2)
Quarter: 2019Q3

REPORT INFORMATION
  Report Type: Not Available
  Country: US (occurrence: US)
  Receive Date: 20190501
  Receipt Date: 20190822
  Transmission Date: 20191004
  Serious: No
  Sender: FDA-Public Use
  Company Number: US-NEUROCRINE BIOSCIENCES INC.-2019NBI01014

PATIENT
  Age: 70 Year
  Sex: Female

DRUGS (2)
  1. INGREZZA [Suspect]
     Active Substance: VALBENAZINE
     Route: 048
     Dates: start: 20190323, end: 20190719
  2. INGREZZA [Suspect]
     Active Substance: VALBENAZINE
     Indication: TARDIVE DYSKINESIA
     Route: 048
     Dates: start: 20190315, end: 20190322

REACTIONS (5)
  - Pharyngeal swelling [Unknown]
  - Dyskinesia [Unknown]
  - Swollen tongue [Unknown]
  - Plicated tongue [Unknown]
  - Tremor [Unknown]

NARRATIVE: CASE EVENT DATE: 2019
